FAERS Safety Report 7958888-3 (Version None)
Quarter: 2011Q4

REPORT INFORMATION
  Report Type: 
  Country: None (occurrence: None)
  Receive Date: 20111206
  Receipt Date: 20111202
  Transmission Date: 20120403
  Serious: Yes (Death, Life-Threatening, Hospitalization)
  Sender: FDA-Public Use
  Company Number: CH-GENZYME-CLOF-1001807

PATIENT
  Sex: Male
  Weight: 115 kg

DRUGS (5)
  1. CYTARABINE [Suspect]
     Indication: ACUTE MYELOID LEUKAEMIA
     Dosage: 400 MG, QD
     Route: 042
     Dates: start: 20110930, end: 20111001
  2. IDARUBICIN HCL [Suspect]
     Indication: ACUTE MYELOID LEUKAEMIA
     Dosage: 24 MG, QD
     Route: 042
     Dates: start: 20110930, end: 20111001
  3. PLATELETS [Concomitant]
     Indication: DISSEMINATED INTRAVASCULAR COAGULATION
  4. PLATELETS [Concomitant]
     Indication: HAEMOPTYSIS
     Dosage: UNK
     Route: 065
     Dates: start: 20110930
  5. EVOLTRA [Suspect]
     Indication: ACUTE MYELOID LEUKAEMIA
     Dosage: 20 MG, QD
     Route: 042
     Dates: start: 20110930, end: 20111001

REACTIONS (3)
  - DISSEMINATED INTRAVASCULAR COAGULATION [None]
  - HAEMOPTYSIS [None]
  - CEREBRAL HAEMORRHAGE [None]
